FAERS Safety Report 7528630-9 (Version None)
Quarter: 2011Q2

REPORT INFORMATION
  Report Type: 
  Country: None (occurrence: None)
  Receive Date: 20110607
  Receipt Date: 20041018
  Transmission Date: 20111010
  Serious: Yes (Death)
  Sender: FDA-Public Use
  Company Number: PHHO2004CA10626

PATIENT
  Sex: Female

DRUGS (5)
  1. CLOZARIL [Suspect]
     Indication: SCHIZOPHRENIA, PARANOID TYPE
     Dosage: 425 MG
     Route: 048
     Dates: start: 20020104
  2. ATENOLOL [Concomitant]
  3. PAROXETINE [Concomitant]
  4. HYDROCHLOROTHIAZIDE [Concomitant]
  5. LORAZEPAM [Concomitant]

REACTIONS (2)
  - MYOCARDIAL INFARCTION [None]
  - CARDIAC DISORDER [None]
